FAERS Safety Report 13961893 (Version 1)
Quarter: 2017Q3

REPORT INFORMATION
  Report Type: Spontaneous
  Country: JP (occurrence: JP)
  Receive Date: 20170912
  Receipt Date: 20170912
  Transmission Date: 20171128
  Serious: Yes (Death, Hospitalization)
  Sender: FDA-Public Use
  Company Number: JP-SA-2017SA165161

PATIENT
  Age: 59 Year
  Sex: Female

DRUGS (4)
  1. NITOROL [Concomitant]
     Active Substance: ISOSORBIDE DINITRATE
     Route: 065
     Dates: start: 20170220
  2. MYOCOR [Concomitant]
     Active Substance: NITROGLYCERIN
     Route: 065
     Dates: start: 20170220
  3. CLOPIDOGREL BISULFATE. [Suspect]
     Active Substance: CLOPIDOGREL BISULFATE
     Indication: ANGINA PECTORIS
     Route: 048
     Dates: end: 201705
  4. ASPIRIN. [Concomitant]
     Active Substance: ASPIRIN
     Indication: ANGINA PECTORIS
     Route: 048
     Dates: end: 201705

REACTIONS (9)
  - Cardiac arrest [Fatal]
  - Dyspnoea [Unknown]
  - Respiratory rate decreased [Fatal]
  - Respiratory arrest [Fatal]
  - Pupils unequal [Fatal]
  - Cerebrovascular accident [Fatal]
  - Nausea [Fatal]
  - Coronary artery stenosis [Unknown]
  - Depressed level of consciousness [Fatal]

NARRATIVE: CASE EVENT DATE: 20150311
